FAERS Safety Report 8017049-2 (Version None)
Quarter: 2012Q1

REPORT INFORMATION
  Report Type: 
  Country: None (occurrence: None)
  Receive Date: 20120102
  Receipt Date: 20111229
  Transmission Date: 20120608
  Serious: Yes (Other)
  Sender: FDA-Public Use
  Company Number: MK-ROCHE-1026447

PATIENT
  Sex: Female
  Weight: 52 kg

DRUGS (2)
  1. BONIVA [Suspect]
     Indication: OSTEOPOROSIS
     Route: 042
     Dates: start: 20110607
  2. OSTEOVIT (CALCIUM/VIT D) [Concomitant]
     Indication: OSTEOPOROSIS
     Dosage: 500MG+100 I E
     Route: 048
     Dates: start: 20110607

REACTIONS (1)
  - THROMBOPHLEBITIS [None]
